FAERS Safety Report 6256658-8 (Version None)
Quarter: 2009Q2

REPORT INFORMATION
  Report Type: 
  Country: None (occurrence: None)
  Receive Date: 20090630
  Receipt Date: 20090630
  Transmission Date: 20091009
  Serious: Yes (Hospitalization)
  Sender: FDA-Public Use
  Company Number: None

PATIENT
  Age: 17 Year
  Sex: Male
  Weight: 60 kg

DRUGS (1)
  1. RITUXIMAB [Suspect]
     Indication: ANAEMIA HAEMOLYTIC AUTOIMMUNE
     Dosage: 325 MG/M2 -700 MG- ONCE WEEKLY IV  3 WEEKLY DOSES TOTAL
     Route: 042
     Dates: start: 20090505, end: 20090519

REACTIONS (7)
  - ALVEOLITIS ALLERGIC [None]
  - BRONCHIAL HYPERREACTIVITY [None]
  - CYTOMEGALOVIRUS TEST POSITIVE [None]
  - DRUG HYPERSENSITIVITY [None]
  - PULMONARY EMBOLISM [None]
  - PULMONARY HYPERTENSION [None]
  - PYREXIA [None]
